FAERS Safety Report 4714619-1 (Version None)
Quarter: 2005Q3

REPORT INFORMATION
  Report Type: 
  Country: None (occurrence: None)
  Receive Date: 20050714
  Receipt Date: 20050630
  Transmission Date: 20060218
  Serious: Yes (Death, Hospitalization)
  Sender: FDA-Public Use
  Company Number: GXKR2005US01305

PATIENT
  Age: 41 Year
  Sex: Male

DRUGS (2)
  1. PREDNISONE (NGX) (PREDNISONE) UNKNOWN [Suspect]
     Dosage: 10 MG,
  2. TACROLIMUS (NGX) (TACROLIMUS) UNKNOWN [Suspect]

REACTIONS (11)
  - ABDOMINAL HAEMATOMA [None]
  - ABDOMINAL PAIN [None]
  - ANEURYSM RUPTURED [None]
  - CARDIAC ARREST [None]
  - CARDIAC VALVE VEGETATION [None]
  - EXTRADURAL ABSCESS [None]
  - HYPOTENSION [None]
  - MYCOTIC ANEURYSM [None]
  - OSTEOMYELITIS [None]
  - PYREXIA [None]
  - RESPIRATORY DISTRESS [None]
